FAERS Safety Report 8237833-X (Version None)
Quarter: 2012Q1

REPORT INFORMATION
  Report Type: 
  Country: None (occurrence: None)
  Receive Date: 20120323
  Receipt Date: 20120313
  Transmission Date: 20120608
  Serious: Yes (Hospitalization, Other)
  Sender: FDA-Public Use
  Company Number: 2011SP058260

PATIENT
  Sex: Female

DRUGS (3)
  1. RIBAVIRIN [Suspect]
     Indication: HEPATITIS C
     Dosage: UNK;UNK
     Dates: start: 20110909
  2. PEG-INTRON [Suspect]
     Indication: HEPATITIS C
     Dosage: UNK;UNK
     Dates: start: 20110919
  3. TELAPREVIR [Suspect]
     Indication: HEPATITIS C
     Dosage: UNK;UNK
     Dates: start: 20110909

REACTIONS (12)
  - GASTRITIS [None]
  - DIZZINESS [None]
  - FATIGUE [None]
  - PRESYNCOPE [None]
  - GOUT [None]
  - ANAEMIA [None]
  - GASTROENTERITIS VIRAL [None]
  - ASTHENIA [None]
  - PULMONARY EMBOLISM [None]
  - DECREASED ACTIVITY [None]
  - CHEST PAIN [None]
  - THROMBOSIS [None]
